FAERS Safety Report 6022515-5 (Version None)
Quarter: 2008Q4

REPORT INFORMATION
  Report Type: 
  Country: None (occurrence: None)
  Receive Date: 20081230
  Receipt Date: 20081223
  Transmission Date: 20090506
  Serious: Yes (Other)
  Sender: FDA-Public Use
  Company Number: US-BAYER-200835120NA

PATIENT
  Age: 25 Year
  Sex: Female
  Weight: 131 kg

DRUGS (1)
  1. MIRENA [Suspect]
     Indication: CONTRACEPTION
     Route: 015
     Dates: start: 20080618

REACTIONS (8)
  - DEPRESSED MOOD [None]
  - DYSFUNCTIONAL UTERINE BLEEDING [None]
  - ECONOMIC PROBLEM [None]
  - MARITAL PROBLEM [None]
  - MEDICAL DEVICE DISCOMFORT [None]
  - PROCEDURAL PAIN [None]
  - SOCIAL PROBLEM [None]
  - UNEVALUABLE EVENT [None]
